FAERS Safety Report 10068971 (Version 3)
Quarter: 2014Q2

REPORT INFORMATION
  Report Type: Report from Study
  Country: US (occurrence: US)
  Receive Date: 20140409
  Receipt Date: 20140507
  Transmission Date: 20141212
  Serious: Yes (Other)
  Sender: FDA-Public Use
  Company Number: US-ALEXION-A201401240

PATIENT
  Sex: 0

DRUGS (2)
  1. SOLIRIS [Suspect]
     Indication: PAROXYSMAL NOCTURNAL HAEMOGLOBINURIA
     Dosage: 900 MG,Q10 DAYS
     Route: 042
     Dates: start: 20130731
  2. PULMICORT [Concomitant]
     Indication: ASTHMA
     Route: 045

REACTIONS (5)
  - Neutrophil count decreased [Not Recovered/Not Resolved]
  - Haemoglobin decreased [Unknown]
  - Haemoglobinuria [Unknown]
  - Nasopharyngitis [Unknown]
  - Pyrexia [Unknown]
